FAERS Safety Report 20722625 (Version 8)
Quarter: 2022Q4

REPORT INFORMATION
  Report Type: Report from Study
  Country: IL (occurrence: IL)
  Receive Date: 20220419
  Receipt Date: 20221005
  Transmission Date: 20230112
  Serious: Yes (Hospitalization, Other)
  Sender: FDA-Public Use
  Company Number: IL-ABBVIE-22K-082-4361425-00

PATIENT
  Age: 75 Year
  Sex: Male

DRUGS (3)
  1. CARBIDOPA\LEVODOPA [Suspect]
     Active Substance: CARBIDOPA\LEVODOPA
     Indication: Parkinson^s disease
     Route: 050
     Dates: start: 20171230
  2. CARBIDOPA\LEVODOPA [Suspect]
     Active Substance: CARBIDOPA\LEVODOPA
     Dosage: MORNING DOSAGE ML 7.8, CONTINUOUS DOSAGE ML/H 3.0, EXTRA DOSAGE ML 0.8
     Route: 050
  3. CARBIDOPA\LEVODOPA [Suspect]
     Active Substance: CARBIDOPA\LEVODOPA
     Dosage: THERAPY DURATION (HRS) REMAINS AT 16
     Route: 050

REACTIONS (11)
  - Volvulus [Recovered/Resolved]
  - Abdominal rigidity [Unknown]
  - Stoma closure [Unknown]
  - Abdominal distension [Unknown]
  - Diarrhoea [Recovered/Resolved]
  - Volvulus [Unknown]
  - Diarrhoea [Not Recovered/Not Resolved]
  - Parkinson^s disease [Unknown]
  - Large intestinal obstruction [Unknown]
  - Large intestinal obstruction [Recovered/Resolved]
  - Constipation [Not Recovered/Not Resolved]

NARRATIVE: CASE EVENT DATE: 20220401
